FAERS Safety Report 11440546 (Version 2)
Quarter: 2015Q4

REPORT INFORMATION
  Report Type: Report from Study
  Country: BR (occurrence: BR)
  Receive Date: 20150901
  Receipt Date: 20151015
  Transmission Date: 20160304
  Serious: Yes (Hospitalization, Disabling, Other)
  Sender: FDA-Public Use
  Company Number: BR-ROCHE-643800

PATIENT
  Age: 62 Year
  Sex: Female
  Weight: 92 kg

DRUGS (27)
  1. OMEPRAZOLE. [Concomitant]
     Active Substance: OMEPRAZOLE
     Indication: BURNING SENSATION
  2. MAREVAN [Concomitant]
     Active Substance: WARFARIN SODIUM
     Route: 065
  3. SOMALIUM [Concomitant]
     Indication: SLEEP DISORDER THERAPY
     Dosage: ADMINISTERED AT NIGHT.
     Route: 065
  4. MABTHERA [Suspect]
     Active Substance: RITUXIMAB
     Route: 042
     Dates: start: 200906, end: 20091015
  5. MABTHERA [Suspect]
     Active Substance: RITUXIMAB
     Route: 042
     Dates: start: 20090901, end: 20150206
  6. FOLIC ACID. [Concomitant]
     Active Substance: FOLIC ACID
     Route: 065
  7. FOLIC ACID. [Concomitant]
     Active Substance: FOLIC ACID
     Route: 065
  8. REMICADE [Suspect]
     Active Substance: INFLIXIMAB
     Indication: RHEUMATOID ARTHRITIS
     Route: 065
  9. VENALOT (BRAZIL) [Suspect]
     Active Substance: COUMARIN\TROXERUTIN
     Indication: PRODUCT USED FOR UNKNOWN INDICATION
     Route: 065
     Dates: start: 201003, end: 201003
  10. ARAVA [Concomitant]
     Active Substance: LEFLUNOMIDE
     Route: 065
  11. MABTHERA [Suspect]
     Active Substance: RITUXIMAB
     Dosage: THE PATIENT TOOK THE SECOND DOSE OF THIRD CYCLE OF RITUXIMAB ON 29 APRIL 2010.
     Route: 042
     Dates: start: 20100414, end: 201010
  12. DEFLAZACORT [Concomitant]
     Active Substance: DEFLAZACORT
     Indication: SWELLING
     Dosage: AS NEEDED
     Route: 065
  13. LIPITOR [Concomitant]
     Active Substance: ATORVASTATIN CALCIUM
     Indication: BLOOD CHOLESTEROL
     Route: 065
  14. ATORVASTATIN [Concomitant]
     Active Substance: ATORVASTATIN
     Indication: BLOOD CHOLESTEROL ABNORMAL
     Route: 065
  15. MABTHERA [Suspect]
     Active Substance: RITUXIMAB
     Indication: RHEUMATOID ARTHRITIS
     Route: 042
  16. MABTHERA [Suspect]
     Active Substance: RITUXIMAB
     Dosage: DOSE: 100 MG/10 ML; FORM: INFUSION
     Route: 042
     Dates: start: 200901, end: 200901
  17. LOSARTAN POTASSIUM. [Concomitant]
     Active Substance: LOSARTAN POTASSIUM
     Indication: HYPERTENSION
  18. SERTRALINE [Concomitant]
     Active Substance: SERTRALINE HYDROCHLORIDE
     Route: 065
  19. BROMAZEPAM [Suspect]
     Active Substance: BROMAZEPAM
     Indication: SLEEP DISORDER THERAPY
     Dosage: THE PATIENT TOOK BROMAZEPAM AT NIGHT.
     Route: 065
  20. ATENOLOL. [Concomitant]
     Active Substance: ATENOLOL
     Indication: HYPERTENSION
     Dosage: OTHER INDICATION: ARRHYTHMIA
     Route: 065
  21. OMEGA 3 [Concomitant]
     Active Substance: OMEGA-3 FATTY ACIDS
  22. MAREVAN [Concomitant]
     Active Substance: WARFARIN SODIUM
     Route: 065
     Dates: start: 2005, end: 201003
  23. FLUOXETINE [Suspect]
     Active Substance: FLUOXETINE HYDROCHLORIDE
     Indication: DEPRESSION
     Route: 065
  24. OMEPRAZOLE. [Concomitant]
     Active Substance: OMEPRAZOLE
     Indication: PROPHYLAXIS
     Route: 065
  25. METHOTREXATE [Concomitant]
     Active Substance: METHOTREXATE
     Indication: RHEUMATOID ARTHRITIS
     Route: 065
  26. FOLIC ACID. [Concomitant]
     Active Substance: FOLIC ACID
     Route: 065
  27. RANITIDINE HYDROCHLORIDE. [Concomitant]
     Active Substance: RANITIDINE HYDROCHLORIDE
     Route: 065

REACTIONS (49)
  - Spinal disorder [Unknown]
  - Abasia [Unknown]
  - Hypoaesthesia [Recovered/Resolved]
  - Irritability [Not Recovered/Not Resolved]
  - Rheumatoid arthritis [Recovered/Resolved]
  - Muscle spasms [Unknown]
  - Spinal pain [Unknown]
  - Cystitis [Unknown]
  - Stress [Unknown]
  - Vitamin D deficiency [Not Recovered/Not Resolved]
  - Pyrexia [Recovered/Resolved]
  - Depression [Not Recovered/Not Resolved]
  - Fall [Unknown]
  - Thrombosis [Recovered/Resolved]
  - Hallucination [Recovered/Resolved]
  - Pain [Recovering/Resolving]
  - Laboratory test abnormal [Unknown]
  - Depression [Unknown]
  - Fatigue [Recovering/Resolving]
  - Arthralgia [Recovered/Resolved]
  - Alopecia [Unknown]
  - Weight increased [Not Recovered/Not Resolved]
  - Malaise [Not Recovered/Not Resolved]
  - Tremor [Recovering/Resolving]
  - Osteoporosis [Not Recovered/Not Resolved]
  - Haemorrhoids [Unknown]
  - Drug ineffective [Unknown]
  - Dysstasia [Recovered/Resolved]
  - Dizziness [Unknown]
  - Headache [Not Recovered/Not Resolved]
  - Mood altered [Recovered/Resolved]
  - Body height decreased [Unknown]
  - Head discomfort [Recovered/Resolved]
  - Eye disorder [Unknown]
  - Nervousness [Not Recovered/Not Resolved]
  - Muscle rigidity [Recovered/Resolved]
  - Malaise [Recovered/Resolved]
  - Blood pressure increased [Unknown]
  - Pulmonary embolism [Recovered/Resolved]
  - Insomnia [Not Recovered/Not Resolved]
  - Blood pressure increased [Recovered/Resolved]
  - Hypoaesthesia [Unknown]
  - Arrhythmia [Not Recovered/Not Resolved]
  - Sensory loss [Unknown]
  - Spinal column injury [Recovering/Resolving]
  - Blood pressure increased [Recovering/Resolving]
  - Pain [Not Recovered/Not Resolved]
  - Dyslipidaemia [Recovered/Resolved]
  - Immunodeficiency [Unknown]

NARRATIVE: CASE EVENT DATE: 2008
